FAERS Safety Report 17520926 (Version 1)
Quarter: 2020Q1

REPORT INFORMATION
  Report Type: Report from Study
  Country: IT (occurrence: IT)
  Receive Date: 20200310
  Receipt Date: 20200310
  Transmission Date: 20200409
  Serious: Yes (Hospitalization)
  Sender: FDA-Public Use
  Company Number: IT-MYLANLABS-2020M1024230

PATIENT
  Age: 49 Year
  Sex: Female

DRUGS (2)
  1. DICLOFENAC [Suspect]
     Active Substance: DICLOFENAC
     Indication: ARTHRALGIA
     Dosage: 1 DOSAGE FORM, QD
     Route: 048
  2. MUSCORIL [Suspect]
     Active Substance: THIOCOLCHICOSIDE
     Indication: ARTHRALGIA
     Dosage: 1 DOSAGE FORM, QD
     Route: 030

REACTIONS (3)
  - Eyelid oedema [Recovering/Resolving]
  - Urticaria [Recovering/Resolving]
  - Hypersensitivity [Recovering/Resolving]

NARRATIVE: CASE EVENT DATE: 20200116
